FAERS Safety Report 4813996-0 (Version None)
Quarter: 2005Q4

REPORT INFORMATION
  Report Type: 
  Country: None (occurrence: None)
  Receive Date: 20051028
  Receipt Date: 20050131
  Transmission Date: 20060501
  Serious: Yes (Other)
  Sender: FDA-Public Use
  Company Number: US-GLAXOSMITHKLINE-A0543091A

PATIENT
  Age: 76 Year
  Sex: Female

DRUGS (8)
  1. SEREVENT [Suspect]
     Indication: ASTHMA
     Route: 055
  2. ALBUTEROL [Concomitant]
  3. BUDESONIDE [Concomitant]
  4. IPRATROPIUM BROMIDE [Concomitant]
  5. ZESTRIL [Concomitant]
  6. EVISTA [Concomitant]
  7. PLAQUENIL [Concomitant]
  8. UNKNOWN MEDICATION [Concomitant]

REACTIONS (1)
  - ASTHMA [None]
